FAERS Safety Report 9159903 (Version 5)
Quarter: 2013Q3

REPORT INFORMATION
  Report Type: Spontaneous
  Country: US (occurrence: US)
  Receive Date: 20130313
  Receipt Date: 20130920
  Transmission Date: 20140515
  Serious: Yes (Other)
  Sender: FDA-Public Use
  Company Number: US-SANOFI-AVENTIS-2013SA023657

PATIENT
  Age: 25 Year
  Sex: Male
  Weight: 67 kg

DRUGS (4)
  1. AUBAGIO [Suspect]
     Indication: MULTIPLE SCLEROSIS
     Route: 048
     Dates: start: 20130201
  2. LAMOTRIGINE [Concomitant]
     Indication: CONVULSION
  3. PHENYTOIN [Concomitant]
     Indication: CONVULSION
  4. PRO-AIR [Concomitant]
     Indication: ASTHMA
     Dosage: TAKEN AS NEEDED

REACTIONS (7)
  - Convulsion [Unknown]
  - Multiple sclerosis relapse [Unknown]
  - Vomiting [Recovered/Resolved]
  - Chills [Recovered/Resolved]
  - Dizziness [Recovered/Resolved]
  - Headache [Recovered/Resolved]
  - Drug dose omission [Unknown]
